FAERS Safety Report 6983896-9 (Version None)
Quarter: 2010Q3

REPORT INFORMATION
  Report Type: 
  Country: None (occurrence: None)
  Receive Date: 20100914
  Receipt Date: 20090227
  Transmission Date: 20110219
  Serious: No
  Sender: FDA-Public Use
  Company Number: US-WYE-H08400409

PATIENT
  Age: 28 Year
  Sex: Male
  Weight: 72.64 kg

DRUGS (3)
  1. ADVIL LIQUI-GELS [Suspect]
     Indication: PAIN
     Dosage: 3 TABLETS EVERY 4 HOURS
     Route: 048
     Dates: start: 20090201, end: 20090201
  2. IBUPROFEN [Suspect]
  3. VICODIN [Suspect]

REACTIONS (2)
  - DRUG SCREEN FALSE POSITIVE [None]
  - OVERDOSE [None]
